FAERS Safety Report 9355568 (Version 1)
Quarter: 2013Q2

REPORT INFORMATION
  Report Type: Spontaneous
  Country: FR (occurrence: FR)
  Receive Date: 20130619
  Receipt Date: 20130619
  Transmission Date: 20140414
  Serious: Yes (Death)
  Sender: FDA-Public Use
  Company Number: FR-SANOFI-AVENTIS-2013SA059763

PATIENT
  Age: 82 Year
  Sex: Male

DRUGS (27)
  1. KARDEGIC [Suspect]
     Indication: ACUTE CORONARY SYNDROME
     Dosage: 1 SACHET
     Route: 048
     Dates: start: 20130504, end: 20130523
  2. LOVENOX [Interacting]
     Indication: PRODUCT USED FOR UNKNOWN INDICATION
     Dosage: 4000UI STRENGTH
     Route: 058
     Dates: start: 20130508, end: 20130523
  3. LOVENOX [Interacting]
     Indication: PRODUCT USED FOR UNKNOWN INDICATION
     Dosage: 6000UI STRENGTH
     Route: 058
     Dates: start: 20130504, end: 20130505
  4. ASPEGIC [Interacting]
     Indication: ACUTE CORONARY SYNDROME
     Route: 042
     Dates: start: 20130504, end: 20130504
  5. HEPARINE CHOAY [Interacting]
     Indication: PRODUCT USED FOR UNKNOWN INDICATION
     Route: 042
     Dates: start: 20130504, end: 20130504
  6. ANGIOX [Interacting]
     Indication: ACUTE CORONARY SYNDROME
     Route: 042
     Dates: start: 20130504, end: 20130504
  7. BRILIQUE [Interacting]
     Indication: ACUTE CORONARY SYNDROME
     Route: 048
     Dates: start: 20130504, end: 20130523
  8. BEFIZAL [Concomitant]
     Dosage: INITIATED BEFORE HOSPITALIZATION
  9. RISORDAN [Concomitant]
     Dates: start: 20130504
  10. PERFALGAN [Concomitant]
     Dates: start: 20130504
  11. CORDARONE [Concomitant]
     Dates: start: 20130507
  12. TAHOR [Concomitant]
     Dosage: STRENGTH: 80 MG
     Dates: start: 20130507
  13. COVERSYL [Concomitant]
     Dosage: STRENGTH: 2.5 MG
  14. XATRAL [Concomitant]
  15. FORLAX [Concomitant]
  16. LASILIX [Concomitant]
  17. DOBUTAMINE [Concomitant]
     Dates: start: 20130507, end: 20130509
  18. NORADRENALINE [Concomitant]
     Route: 065
     Dates: start: 20130507, end: 20130515
  19. NORADRENALINE [Concomitant]
     Route: 065
     Dates: start: 20130518, end: 20130523
  20. MIDAZOLAM [Concomitant]
     Dates: start: 20130507, end: 20130510
  21. MIDAZOLAM [Concomitant]
     Dates: start: 20130512, end: 20130515
  22. MIDAZOLAM [Concomitant]
     Dates: start: 20130517, end: 20130523
  23. KREDEX [Concomitant]
     Dates: start: 20130504, end: 20130507
  24. LEXOMIL [Concomitant]
     Dates: start: 20130504, end: 20130506
  25. AUGMENTIN [Concomitant]
     Dates: start: 20130509, end: 20130514
  26. AUGMENTIN [Concomitant]
     Dates: start: 20130521, end: 20130523
  27. TAZOCILLINE [Concomitant]
     Dates: start: 20130518, end: 20130521

REACTIONS (5)
  - Pulmonary alveolar haemorrhage [Fatal]
  - Drug interaction [Fatal]
  - Haematuria [Recovered/Resolved]
  - Haemoglobin decreased [Not Recovered/Not Resolved]
  - Puncture site haemorrhage [Not Recovered/Not Resolved]
